FAERS Safety Report 23195353 (Version 2)
Quarter: 2024Q1

REPORT INFORMATION
  Report Type: Report from Study
  Country: FI (occurrence: FI)
  Receive Date: 20231117
  Receipt Date: 20240213
  Transmission Date: 20240410
  Serious: Yes (Hospitalization, Other)
  Sender: FDA-Public Use
  Company Number: FI-BRISTOL-MYERS SQUIBB COMPANY-2023-152394

PATIENT

DRUGS (18)
  1. DEXAMETHASONE [Suspect]
     Active Substance: DEXAMETHASONE
     Indication: Plasma cell myeloma refractory
     Dosage: 40 MG, 1 DOSE WEEKLY, TABLET
     Route: 048
     Dates: start: 20231009, end: 20231016
  2. DARZALEX [Suspect]
     Active Substance: DARATUMUMAB
     Indication: Plasma cell myeloma refractory
     Dosage: 1800 MG, 1 DOSE WEEKLY
     Route: 058
     Dates: start: 20231009, end: 20231016
  3. POMALIDOMIDE [Suspect]
     Active Substance: POMALIDOMIDE
     Indication: Plasma cell myeloma refractory
     Dosage: 4 MG, QD
     Route: 048
     Dates: start: 20231009, end: 20231021
  4. LEVOTHYROXINE [Concomitant]
     Active Substance: LEVOTHYROXINE\LEVOTHYROXINE SODIUM
     Indication: Hypothyroidism
     Dosage: UNK
     Route: 048
     Dates: start: 20181104
  5. ZOLEDRONIC ACID [Concomitant]
     Active Substance: ZOLEDRONIC ACID
     Indication: Prophylaxis
     Dosage: UNK
     Route: 042
     Dates: start: 20201029
  6. BACTRIM [Concomitant]
     Active Substance: SULFAMETHOXAZOLE\TRIMETHOPRIM
     Indication: Prophylaxis
     Dosage: UNK
     Route: 048
     Dates: start: 20170209
  7. LOPERAMIDE [Concomitant]
     Active Substance: LOPERAMIDE
     Indication: Diarrhoea
     Dosage: UNK
     Route: 048
     Dates: start: 20220116
  8. ACYCLOVIR [Concomitant]
     Active Substance: ACYCLOVIR
     Indication: Antiviral prophylaxis
     Dosage: UNK
     Route: 048
     Dates: start: 20231006
  9. BUDESONIDE\FORMOTEROL [Concomitant]
     Active Substance: BUDESONIDE\FORMOTEROL
     Indication: Asthma
     Dosage: UNK
     Route: 055
     Dates: start: 20070211
  10. CHOLESTYRAMINE [Concomitant]
     Active Substance: CHOLESTYRAMINE
     Indication: Diarrhoea
     Dosage: UNK
     Route: 048
     Dates: start: 20220116
  11. CALCIUM CARBONATE\VITAMIN D [Concomitant]
     Active Substance: CALCIUM CARBONATE\VITAMIN D
     Indication: Osteoporosis prophylaxis
     Dosage: UNK
     Route: 048
     Dates: start: 20220116
  12. ESTRADIOL [Concomitant]
     Active Substance: ESTRADIOL
     Indication: Prophylaxis
     Dosage: UNK
     Route: 067
     Dates: start: 20230517
  13. POTASSIUM CHLORIDE [Concomitant]
     Active Substance: POTASSIUM CHLORIDE
     Indication: Prophylaxis
     Dosage: UNK
     Route: 048
     Dates: start: 20220116
  14. AZELASTINE HYDROCHLORIDE\FLUTICASONE PROPIONATE [Concomitant]
     Active Substance: AZELASTINE HYDROCHLORIDE\FLUTICASONE PROPIONATE
     Indication: Asthma
     Dosage: UNK
     Route: 045
     Dates: start: 20070211
  15. AMLODIPINE BESYLATE [Concomitant]
     Active Substance: AMLODIPINE BESYLATE
     Indication: Hypertonia
     Dosage: UNK
     Route: 048
     Dates: start: 20190131
  16. ALBUTEROL [Concomitant]
     Active Substance: ALBUTEROL
     Indication: Asthma
     Dosage: UNK
     Route: 045
     Dates: start: 20070211
  17. ENOXAPARIN [Concomitant]
     Active Substance: ENOXAPARIN
     Indication: Thrombosis prophylaxis
     Dosage: UNK
     Route: 058
     Dates: start: 20170209
  18. PANTOPRAZOLE SODIUM [Concomitant]
     Active Substance: PANTOPRAZOLE SODIUM
     Indication: Prophylaxis
     Dosage: UNK
     Route: 048
     Dates: start: 20170209

REACTIONS (2)
  - Pneumonia [Not Recovered/Not Resolved]
  - Febrile neutropenia [Not Recovered/Not Resolved]

NARRATIVE: CASE EVENT DATE: 20231021
